FAERS Safety Report 4971738-2 (Version None)
Quarter: 2006Q2

REPORT INFORMATION
  Report Type: 
  Country: None (occurrence: None)
  Receive Date: 20060407
  Receipt Date: 20060329
  Transmission Date: 20061013
  Serious: Yes (Hospitalization)
  Sender: FDA-Public Use
  Company Number: 163-21880-06020668

PATIENT
  Age: 93 Year
  Sex: Female

DRUGS (16)
  1. REVLIMID [Suspect]
     Indication: MYELODYSPLASTIC SYNDROME
     Dosage: 5 MG, DAILY, ORAL
     Route: 048
     Dates: start: 20060207, end: 20060213
  2. CORDARONE [Concomitant]
  3. ASPIRIN [Concomitant]
  4. THYROID TAB [Concomitant]
  5. PREVACID (LANSOPRAZOLE) (TABLETS) [Concomitant]
  6. DIOVAN [Concomitant]
  7. IRON (IRON) [Concomitant]
  8. COUMADIN [Concomitant]
  9. CYANOCOBALAMIN [Concomitant]
  10. TUMS (CALCIUM CARBONATE) [Concomitant]
  11. TEARS NATURALE (TEARS NATURALE) [Concomitant]
  12. CLEAR EYES (CLEAR EYES ACR) [Concomitant]
  13. VITAMIN D [Concomitant]
  14. FORTEO [Concomitant]
  15. AMOXICILLIN [Concomitant]
  16. HALDOL SOLUTAB [Concomitant]

REACTIONS (21)
  - ASTHENIA [None]
  - CONSTIPATION [None]
  - COUGH [None]
  - DECREASED APPETITE [None]
  - DIAPHRAGMALGIA [None]
  - DIVERTICULUM [None]
  - DYSPHAGIA [None]
  - DYSPNOEA EXERTIONAL [None]
  - FEELING COLD [None]
  - HEADACHE [None]
  - INCONTINENCE [None]
  - INTERNATIONAL NORMALISED RATIO DECREASED [None]
  - NEUTROPHIL COUNT DECREASED [None]
  - PLATELET COUNT DECREASED [None]
  - POLLAKIURIA [None]
  - POLYURIA [None]
  - PRURITUS [None]
  - RECTAL HAEMORRHAGE [None]
  - TINNITUS [None]
  - TREMOR [None]
  - WHITE BLOOD CELL COUNT DECREASED [None]
